FAERS Safety Report 13201793 (Version 1)
Quarter: 2017Q1

REPORT INFORMATION
  Report Type: Spontaneous
  Country: US (occurrence: US)
  Receive Date: 20170208
  Receipt Date: 20170208
  Transmission Date: 20170428
  Serious: No
  Sender: FDA-Public Use
  Company Number: US-AEGERION PHARMACEUTICAL INC.-AEGR002917

PATIENT
  Age: 15 Year
  Sex: Female

DRUGS (3)
  1. MYALEPT [Suspect]
     Active Substance: METRELEPTIN
     Indication: LIPODYSTROPHY ACQUIRED
     Dosage: UNK
     Route: 058
  2. INSULIN PUMP [Concomitant]
     Active Substance: INSULIN NOS
     Indication: PRODUCT USED FOR UNKNOWN INDICATION
  3. MYALEPT [Suspect]
     Active Substance: METRELEPTIN
     Dosage: 7.5 MG, QD
     Route: 058
     Dates: start: 20151203

REACTIONS (1)
  - Acne [Unknown]

NARRATIVE: CASE EVENT DATE: 201701
